FAERS Safety Report 12142912 (Version 4)
Quarter: 2017Q2

REPORT INFORMATION
  Report Type: Spontaneous
  Country: DE (occurrence: DE)
  Receive Date: 20160303
  Receipt Date: 20170501
  Transmission Date: 20170829
  Serious: Yes (Hospitalization, Other)
  Sender: FDA-Public Use
  Company Number: DE-GILEAD-2016-0200328

PATIENT
  Age: 85 Year
  Sex: Male
  Weight: 169 kg

DRUGS (11)
  1. ZYDELIG [Suspect]
     Active Substance: IDELALISIB
     Dosage: 100 MG, BID
     Route: 065
     Dates: start: 20160728, end: 201609
  2. RIVAROXABAN [Concomitant]
     Active Substance: RIVAROXABAN
     Indication: ATRIAL FIBRILLATION
     Dosage: 20 MG, UNK
     Route: 048
  3. HCT [Concomitant]
     Active Substance: HYDROCHLOROTHIAZIDE
     Indication: HYPERTENSION
     Dosage: 25 MG, UNK
     Route: 048
  4. ZYDELIG [Suspect]
     Active Substance: IDELALISIB
     Dosage: 150 MG, BID
     Route: 065
     Dates: start: 201602, end: 201607
  5. BISOPROLOL [Concomitant]
     Active Substance: BISOPROLOL
     Indication: CARDIAC FAILURE
     Dosage: 2.5 MG, UNK
     Route: 048
  6. HCT [Concomitant]
     Active Substance: HYDROCHLOROTHIAZIDE
     Indication: CARDIAC FAILURE
  7. MACROGOL [Concomitant]
     Active Substance: POLYETHYLENE GLYCOLS
     Indication: CONSTIPATION
     Dosage: 1 SACHET
     Route: 048
  8. ZYDELIG [Suspect]
     Active Substance: IDELALISIB
     Indication: B-CELL SMALL LYMPHOCYTIC LYMPHOMA
     Dosage: 150 MG, BID
     Route: 065
     Dates: start: 201512, end: 20160210
  9. RITUXIMAB [Concomitant]
     Active Substance: RITUXIMAB
  10. BISOPROLOL [Concomitant]
     Active Substance: BISOPROLOL
     Indication: ATRIAL FIBRILLATION
  11. BISOPROLOL [Concomitant]
     Active Substance: BISOPROLOL
     Indication: HYPERTENSION

REACTIONS (10)
  - Mucosal inflammation [Recovering/Resolving]
  - Full blood count abnormal [Not Recovered/Not Resolved]
  - Lymphocytosis [Not Recovered/Not Resolved]
  - Herpes simplex [Recovering/Resolving]
  - Diarrhoea [Unknown]
  - Disease progression [Unknown]
  - Paronychia [Recovering/Resolving]
  - Colitis [Recovered/Resolved]
  - Sinusitis [Unknown]
  - Drug dose omission [Unknown]

NARRATIVE: CASE EVENT DATE: 20160128
